FAERS Safety Report 12981721 (Version 2)
Quarter: 2016Q4

REPORT INFORMATION
  Report Type: Spontaneous
  Country: ES (occurrence: ES)
  Receive Date: 20161129
  Receipt Date: 20161208
  Transmission Date: 20170207
  Serious: Yes (Other)
  Sender: FDA-Public Use
  Company Number: ES-AMGEN-ESPSP2016165004

PATIENT
  Age: 65 Year
  Sex: Female

DRUGS (10)
  1. URSODEOXYCHOLIC ACID [Concomitant]
     Active Substance: URSODIOL
  2. IRON [Concomitant]
     Active Substance: IRON
  3. CALCIUM [Concomitant]
     Active Substance: CALCIUM
  4. ACENOCOUMAROL [Concomitant]
     Active Substance: ACENOCOUMAROL
  5. VITAMIN D2 [Concomitant]
     Active Substance: ERGOCALCIFEROL
  6. SINTROM [Concomitant]
     Active Substance: ACENOCOUMAROL
     Dosage: UNK
     Dates: start: 2009
  7. PROLIA [Suspect]
     Active Substance: DENOSUMAB
     Indication: OSTEOPOROSIS
  8. VITAMIN B12 [Concomitant]
     Active Substance: CYANOCOBALAMIN
  9. PROLIA [Suspect]
     Active Substance: DENOSUMAB
     Indication: NECK PAIN
     Dosage: UNK
     Route: 065
     Dates: end: 201605
  10. CALCIFEDIOL [Concomitant]
     Active Substance: CALCIFEDIOL

REACTIONS (28)
  - Vision blurred [Recovered/Resolved]
  - Dizziness [Not Recovered/Not Resolved]
  - Vein disorder [Unknown]
  - Tooth fracture [Recovered/Resolved]
  - Pruritus generalised [Recovered/Resolved]
  - Bone disorder [Unknown]
  - Arrhythmia [Unknown]
  - Nasal operation [Unknown]
  - Meniscus operation [Unknown]
  - Palmar erythema [Unknown]
  - Infection [Unknown]
  - Cardiac failure [Unknown]
  - Pain [Unknown]
  - Liver disorder [Unknown]
  - Fatigue [Not Recovered/Not Resolved]
  - Mobility decreased [Unknown]
  - Deafness [Not Recovered/Not Resolved]
  - Bruxism [Unknown]
  - Back pain [Not Recovered/Not Resolved]
  - Abasia [Unknown]
  - Gingival swelling [Not Recovered/Not Resolved]
  - Oral disorder [Recovered/Resolved]
  - Dental caries [Not Recovered/Not Resolved]
  - Onychoclasis [Not Recovered/Not Resolved]
  - Off label use [Unknown]
  - Pain in extremity [Unknown]
  - Paraesthesia [Recovered/Resolved]
  - Sciatica [Not Recovered/Not Resolved]
